FAERS Safety Report 16819699 (Version 1)
Quarter: 2019Q3

REPORT INFORMATION
  Report Type: Report from Study
  Country: FR (occurrence: FR)
  Receive Date: 20190917
  Receipt Date: 20190917
  Transmission Date: 20191005
  Serious: Yes (Hospitalization, Other)
  Sender: FDA-Public Use
  Company Number: FR-GILEAD-2019-0427848

PATIENT
  Age: 39 Year
  Sex: Male

DRUGS (3)
  1. EMTRICITABINE [Suspect]
     Active Substance: EMTRICITABINE
     Indication: HIV INFECTION
     Dosage: UNK
     Route: 065
     Dates: start: 20040909
  2. TENOFOVIR DISOPROXIL FUMARATE. [Suspect]
     Active Substance: TENOFOVIR DISOPROXIL FUMARATE
     Indication: HIV INFECTION
     Dosage: 300 MG
     Route: 065
     Dates: start: 20040909
  3. VIRACEPT [Suspect]
     Active Substance: NELFINAVIR MESYLATE
     Indication: HIV INFECTION
     Dosage: UNK
     Route: 065
     Dates: start: 20040909, end: 20040914

REACTIONS (4)
  - Pancytopenia [Unknown]
  - Cerebral toxoplasmosis [Unknown]
  - Toxic skin eruption [Recovered/Resolved]
  - Urticaria [Recovered/Resolved]
